FAERS Safety Report 21035488 (Version 2)
Quarter: 2022Q3

REPORT INFORMATION
  Report Type: Spontaneous
  Country: US (occurrence: None)
  Receive Date: 20220701
  Receipt Date: 20220708
  Transmission Date: 20221026
  Serious: Yes (Other)
  Sender: FDA-Public Use
  Company Number: US-Merck Healthcare KGaA-9332882

PATIENT
  Age: 33 Year
  Sex: Male

DRUGS (1)
  1. MAVENCLAD [Suspect]
     Active Substance: CLADRIBINE
     Indication: Multiple sclerosis

REACTIONS (15)
  - Blindness [Unknown]
  - Gait disturbance [Unknown]
  - Hypoaesthesia [Unknown]
  - Paraesthesia [Unknown]
  - Vision blurred [Unknown]
  - Diplopia [Unknown]
  - Dizziness [Unknown]
  - Vertigo [Unknown]
  - Balance disorder [Unknown]
  - Sexual dysfunction [Unknown]
  - Myalgia [Unknown]
  - Depression [Unknown]
  - Middle insomnia [Unknown]
  - Nystagmus [Unknown]
  - Eye pain [Unknown]
